FAERS Safety Report 5680824-3 (Version None)
Quarter: 2008Q1

REPORT INFORMATION
  Report Type: 
  Country: None (occurrence: None)
  Receive Date: 20080326
  Receipt Date: 20080319
  Transmission Date: 20080703
  Serious: Yes (Death)
  Sender: FDA-Public Use
  Company Number: AT-ABBOTT-08P-009-0441686-00

PATIENT
  Age: 57 Year
  Sex: Female
  Weight: 59.5 kg

DRUGS (2)
  1. ZEMPLAR [Suspect]
     Indication: HYPERPARATHYROIDISM
     Route: 042
     Dates: start: 20070306, end: 20070406
  2. ZEMPLAR [Suspect]
     Route: 042
     Dates: start: 20070406, end: 20070506

REACTIONS (2)
  - CARDIAC ARREST [None]
  - MYOCARDIAL INFARCTION [None]
